FAERS Safety Report 11199810 (Version 4)
Quarter: 2015Q3

REPORT INFORMATION
  Report Type: Spontaneous
  Country: PL (occurrence: PL)
  Receive Date: 20150618
  Receipt Date: 20150921
  Transmission Date: 20151125
  Serious: Yes (Other)
  Sender: FDA-Public Use
  Company Number: PL-GLAXOSMITHKLINE-PL2015GSK084280

PATIENT
  Sex: Male

DRUGS (3)
  1. NYSTATIN. [Concomitant]
     Active Substance: NYSTATIN
     Indication: PHARYNGITIS
     Dosage: 1 UNK, TID
     Dates: start: 20150609
  2. FLAVAMED [Concomitant]
     Active Substance: AMBROXOL
     Indication: PHARYNGITIS
     Dosage: 1 UNK, BID
     Dates: start: 20150609
  3. ZINNAT [Suspect]
     Active Substance: CEFUROXIME AXETIL
     Indication: UPPER RESPIRATORY TRACT INFECTION
     Dosage: 500 MG, BID
     Route: 048
     Dates: start: 20150609

REACTIONS (3)
  - Product quality issue [Unknown]
  - Choking [Recovered/Resolved]
  - Dysphonia [Recovered/Resolved]
